FAERS Safety Report 25589463 (Version 1)
Quarter: 2025Q3

REPORT INFORMATION
  Report Type: Spontaneous
  Country: US (occurrence: US)
  Receive Date: 20250722
  Receipt Date: 20250722
  Transmission Date: 20251020
  Serious: Yes (Other)
  Sender: AMGEN
  Company Number: US-AMGEN-USASP2025136568

PATIENT

DRUGS (7)
  1. PREDNISONE [Suspect]
     Active Substance: PREDNISONE
     Indication: Granulomatosis with polyangiitis
     Dosage: 30 MILLIGRAM, QD
     Route: 065
  2. PREDNISONE [Suspect]
     Active Substance: PREDNISONE
     Dosage: 30 MILLIGRAM, QD UP TO 12 MONTHS
     Route: 065
  3. ABATACEPT [Suspect]
     Active Substance: ABATACEPT
     Indication: Granulomatosis with polyangiitis
     Dosage: 125 MILLIGRAM, QWK
     Route: 058
  4. METHOTREXATE [Concomitant]
     Active Substance: METHOTREXATE
  5. AZATHIOPRINE [Concomitant]
     Active Substance: AZATHIOPRINE
  6. MYCOPHENOLIC ACID [Concomitant]
     Active Substance: MYCOPHENOLIC ACID
  7. LEFLUNOMIDE [Concomitant]
     Active Substance: LEFLUNOMIDE

REACTIONS (21)
  - Atrial fibrillation [Unknown]
  - Cerebrovascular accident [Unknown]
  - Bladder perforation [Unknown]
  - Bronchial obstruction [Unknown]
  - Neoplasm malignant [Unknown]
  - Pneumonia [Unknown]
  - Pulmonary haemorrhage [Unknown]
  - Autoimmune disorder [Unknown]
  - Embolism [Unknown]
  - Dyspnoea [Unknown]
  - Eye disorder [Unknown]
  - Hypersensitivity [Unknown]
  - Influenza like illness [Unknown]
  - Anaemia [Unknown]
  - Upper respiratory tract infection [Unknown]
  - Bronchitis [Unknown]
  - Skin infection [Unknown]
  - Device related infection [Unknown]
  - Infection [Unknown]
  - Surgery [Unknown]
  - Vasculitis [Unknown]
